FAERS Safety Report 17763213 (Version 6)
Quarter: 2021Q4

REPORT INFORMATION
  Report Type: Report from Study
  Country: FR (occurrence: FR)
  Receive Date: 20200508
  Receipt Date: 20211201
  Transmission Date: 20220303
  Serious: Yes (Hospitalization, Disabling, Congenital Anomaly, Other)
  Sender: FDA-Public Use
  Company Number: FR-ABBVIE-20K-056-3394640-00

PATIENT
  Age: 67 Year
  Sex: Female
  Weight: 89 kg

DRUGS (22)
  1. ADALIMUMAB [Suspect]
     Active Substance: ADALIMUMAB
     Indication: Colitis ulcerative
     Route: 058
     Dates: start: 20170602, end: 20190314
  2. ADALIMUMAB [Suspect]
     Active Substance: ADALIMUMAB
     Indication: Crohn^s disease
     Dosage: DOSE INCREASED
     Route: 058
  3. VALSARTAN [Concomitant]
     Active Substance: VALSARTAN
     Indication: Hypertension
     Route: 048
     Dates: start: 2006
  4. METOPROLOL [Concomitant]
     Active Substance: METOPROLOL
     Indication: Hypertension
     Route: 048
     Dates: start: 2006
  5. LANSOPRAZOLE [Concomitant]
     Active Substance: LANSOPRAZOLE
     Indication: Gastrooesophageal reflux disease
     Route: 048
     Dates: start: 2006
  6. LEVOTHYROXINE [Concomitant]
     Active Substance: LEVOTHYROXINE
     Indication: Thyroidectomy
     Route: 048
     Dates: start: 20161205
  7. NOVORAPID [Concomitant]
     Active Substance: INSULIN ASPART
     Indication: Diabetes mellitus
     Dosage: 10 U/ML
     Route: 058
     Dates: start: 1996
  8. NOVORAPID [Concomitant]
     Active Substance: INSULIN ASPART
     Dates: start: 20201016
  9. LANTUS [Concomitant]
     Active Substance: INSULIN GLARGINE
     Indication: Diabetes mellitus
     Dosage: 30 U/ML
     Route: 058
     Dates: start: 1996
  10. LANTUS [Concomitant]
     Active Substance: INSULIN GLARGINE
     Route: 058
     Dates: start: 20201016
  11. PROZAC [Concomitant]
     Active Substance: FLUOXETINE HYDROCHLORIDE
     Indication: Antidepressant therapy
     Route: 048
     Dates: start: 20161205
  12. ZOLPIDEM TARTRATE [Concomitant]
     Active Substance: ZOLPIDEM TARTRATE
     Indication: Antidepressant therapy
     Route: 048
     Dates: start: 20161205
  13. STELARA [Concomitant]
     Active Substance: USTEKINUMAB
     Indication: Colitis ulcerative
     Route: 058
     Dates: start: 20190711
  14. IRBESARTAN [Concomitant]
     Active Substance: IRBESARTAN
     Indication: Product used for unknown indication
     Dates: start: 20201016
  15. METOPROLOL [Concomitant]
     Active Substance: METOPROLOL
     Indication: Product used for unknown indication
     Dates: start: 20211016
  16. LANSOPRAZOLE [Concomitant]
     Active Substance: LANSOPRAZOLE
     Indication: Product used for unknown indication
     Dates: start: 20201016
  17. LEVOTHYROXINE [Concomitant]
     Active Substance: LEVOTHYROXINE
     Indication: Product used for unknown indication
     Dates: start: 20201016
  18. PROZAC [Concomitant]
     Active Substance: FLUOXETINE HYDROCHLORIDE
     Indication: Product used for unknown indication
     Dates: start: 20201016
  19. FERROUS FUMARATE [Concomitant]
     Active Substance: FERROUS FUMARATE
     Indication: Product used for unknown indication
     Dates: start: 20201016
  20. FOLIC ACID [Concomitant]
     Active Substance: FOLIC ACID
     Indication: Product used for unknown indication
     Dates: start: 20201016
  21. AUGMENTIN [Concomitant]
     Active Substance: AMOXICILLIN\CLAVULANATE POTASSIUM
     Indication: Product used for unknown indication
     Dates: start: 20201007, end: 20201015
  22. DOLIPRANE [Concomitant]
     Active Substance: ACETAMINOPHEN
     Indication: Pain

REACTIONS (10)
  - Nervous system disorder [Not Recovered/Not Resolved]
  - Cerebellar syndrome [Recovered/Resolved with Sequelae]
  - Dizziness [Recovered/Resolved]
  - Renal failure [Recovered/Resolved]
  - Hypoaesthesia [Recovered/Resolved with Sequelae]
  - Paraesthesia [Recovered/Resolved with Sequelae]
  - Dehydration [Recovered/Resolved]
  - Rectal haemorrhage [Recovered/Resolved]
  - Proctalgia [Recovered/Resolved]
  - Adenocarcinoma of colon [Not Recovered/Not Resolved]

NARRATIVE: CASE EVENT DATE: 20190410
